FAERS Safety Report 19270269 (Version 5)
Quarter: 2021Q3

REPORT INFORMATION
  Report Type: Report from Study
  Country: US (occurrence: US)
  Receive Date: 20210518
  Receipt Date: 20210928
  Transmission Date: 20211014
  Serious: Yes (Hospitalization, Other)
  Sender: FDA-Public Use
  Company Number: US-B.I. PHARMACEUTICALS,INC./RIDGEFIELD-2021-BI-092915

PATIENT
  Age: 76 Year
  Sex: Male

DRUGS (1)
  1. OFEV [Suspect]
     Active Substance: NINTEDANIB
     Indication: PULMONARY FIBROSIS
     Dosage: TAKE ONE BY MOUTH TWICE DAILY
     Route: 048
     Dates: start: 20210108

REACTIONS (12)
  - Myocardial infarction [Unknown]
  - Dyspnoea [Unknown]
  - Pain in extremity [Unknown]
  - Weight decreased [Unknown]
  - Facial bones fracture [Unknown]
  - Pulmonary congestion [Unknown]
  - Sputum increased [Not Recovered/Not Resolved]
  - Productive cough [Not Recovered/Not Resolved]
  - Movement disorder [Unknown]
  - Diarrhoea [Unknown]
  - Peripheral coldness [Unknown]
  - Muscle spasms [Unknown]
